FAERS Safety Report 9548293 (Version 1)
Quarter: 2013Q2

REPORT INFORMATION
  Report Type: Spontaneous
  Country: US (occurrence: None)
  Receive Date: 20130627
  Receipt Date: 20130627
  Transmission Date: 20140414
  Serious: No
  Sender: FDA-Public Use
  Company Number: 1000043527

PATIENT
  Age: 52 Year
  Sex: Female

DRUGS (8)
  1. LINZESS (LINACLOTIDE) (145 MICROGRAM, CAPSULES) [Suspect]
     Indication: CONSTIPATION
     Dosage: 145 MCG (145 MCG, 1 IN 1), ORAL
     Route: 048
     Dates: start: 20130225
  2. PROBIOTIC NOS (PROBIOTIC NOS) (PROBIOTIC NOS) [Concomitant]
  3. CYMBALTA (DULOXETINE HYDROCHOLORIDE) (DULOXETINE HYDROCHLORIDE) [Concomitant]
  4. DILTIAZEM (DILTIAZEM HYDROCHLORIDE) (DILTIAZEM HYDROCHLORIDE) [Concomitant]
  5. CLONIDINE (CLONIDINE) (CLONIDINE) [Concomitant]
  6. CRESTOR (ROSUVASTATIN CALCIUM) (ROSUVASTATIN CALCIUM) [Concomitant]
  7. OMEGA-3 (OMEGA-3) (OMEGA-3) [Concomitant]
  8. PANTOPRAZOLE (PANTOPRAZOLE) (PANTOPRAZOLE) [Concomitant]

REACTIONS (2)
  - Diarrhoea [None]
  - Drug ineffective [None]
